FAERS Safety Report 15331460 (Version 1)
Quarter: 2018Q3

REPORT INFORMATION
  Report Type: Spontaneous
  Country: US (occurrence: US)
  Receive Date: 20180829
  Receipt Date: 20180829
  Transmission Date: 20181010
  Serious: Yes (Life-Threatening, Hospitalization, Other)
  Sender: FDA-Public Use
  Company Number: US-ASTRAZENECA-2018SE34045

PATIENT
  Age: 56 Year
  Sex: Male
  Weight: 77.6 kg

DRUGS (23)
  1. METOPROLOL SUCCINATE. [Suspect]
     Active Substance: METOPROLOL SUCCINATE
     Route: 048
  2. WELLBUTRIN [Concomitant]
     Active Substance: BUPROPION HYDROCHLORIDE
     Dates: start: 2013
  3. LYRICA [Concomitant]
     Active Substance: PREGABALIN
     Dosage: 100
     Dates: start: 2017
  4. WARFARIN [Concomitant]
     Active Substance: WARFARIN
     Dates: start: 2016
  5. SYMBICORT [Suspect]
     Active Substance: BUDESONIDE\FORMOTEROL FUMARATE DIHYDRATE
     Indication: THROAT CANCER
     Dosage: 160/4.5 MCG, TWICE A DAY
     Route: 055
     Dates: start: 2013
  6. AMOXICILLIAN CALVULANATE [Concomitant]
     Indication: OROPHARYNGEAL PAIN
     Dates: start: 20180228
  7. SUCRALFATE. [Concomitant]
     Active Substance: SUCRALFATE
     Dates: start: 2017
  8. COUMADIN [Concomitant]
     Active Substance: WARFARIN SODIUM
     Indication: ANTICOAGULANT THERAPY
     Dates: start: 2017
  9. FLONASE [Concomitant]
     Active Substance: FLUTICASONE PROPIONATE
     Indication: DYSPNOEA
     Dates: start: 2016
  10. ULTRAM [Concomitant]
     Active Substance: TRAMADOL HYDROCHLORIDE
     Dosage: 50.0MG EVERY 4 ? 6 HOURS
     Dates: start: 2017
  11. MORPHINE [Concomitant]
     Active Substance: MORPHINE
     Indication: ILL-DEFINED DISORDER
     Dates: start: 2015
  12. FLUCONAZOLE. [Concomitant]
     Active Substance: FLUCONAZOLE
     Dates: start: 2016
  13. LIDOCAINE. [Concomitant]
     Active Substance: LIDOCAINE
     Dates: start: 2017
  14. ZOFRAN [Concomitant]
     Active Substance: ONDANSETRON HYDROCHLORIDE
     Indication: NAUSEA
     Dosage: 4.0MG EVERY 4 ? 6 HOURS
     Dates: start: 2016
  15. OSMOLITE [Concomitant]
     Dosage: 1.5 TWO TIMES A DAY
     Dates: start: 201602
  16. PROCHLORPERAZINE. [Concomitant]
     Active Substance: PROCHLORPERAZINE
     Dates: start: 2016
  17. SYMBICORT [Suspect]
     Active Substance: BUDESONIDE\FORMOTEROL FUMARATE DIHYDRATE
     Indication: CHRONIC OBSTRUCTIVE PULMONARY DISEASE
     Dosage: 160/4.5 MCG, TWICE A DAY
     Route: 055
     Dates: start: 2013
  18. ALBUTEROL. [Concomitant]
     Active Substance: ALBUTEROL
     Indication: THROAT CANCER
     Dates: start: 2016
  19. DULOXETINE. [Concomitant]
     Active Substance: DULOXETINE
     Dates: start: 2017
  20. SEROQUEL [Suspect]
     Active Substance: QUETIAPINE FUMARATE
     Indication: SLEEP DISORDER
     Route: 048
     Dates: start: 2018
  21. VERAPAMIL [Concomitant]
     Active Substance: VERAPAMIL HYDROCHLORIDE
  22. KLONOPIN [Concomitant]
     Active Substance: CLONAZEPAM
     Dosage: 1 TWO TIMES A DAY
     Dates: start: 2013
  23. OXYGEN. [Concomitant]
     Active Substance: OXYGEN
     Indication: DYSPNOEA
     Dosage: AT NIGHT

REACTIONS (6)
  - Off label use [Unknown]
  - Ear pain [Recovered/Resolved]
  - Throat cancer [Not Recovered/Not Resolved]
  - Product use in unapproved indication [Unknown]
  - Oropharyngeal pain [Recovered/Resolved]
  - Chronic obstructive pulmonary disease [Not Recovered/Not Resolved]

NARRATIVE: CASE EVENT DATE: 2016
